FAERS Safety Report 6678143-1 (Version None)
Quarter: 2010Q2

REPORT INFORMATION
  Report Type: 
  Country: None (occurrence: None)
  Receive Date: 20100409
  Receipt Date: 20100409
  Transmission Date: 20101027
  Serious: Yes (Other)
  Sender: FDA-Public Use
  Company Number: None

PATIENT
  Age: 64 Year
  Sex: Female
  Weight: 77.5651 kg

DRUGS (3)
  1. KEPPRA [Suspect]
     Indication: CONVULSION
     Dosage: 250 MG 1 TAB BID
  2. KEPPRA [Suspect]
     Indication: POST PROCEDURAL COMPLICATION
     Dosage: 250 MG 1 TAB BID
  3. KEPPRA [Concomitant]

REACTIONS (2)
  - DYSKINESIA [None]
  - PRODUCT SUBSTITUTION ISSUE [None]
